FAERS Safety Report 5719142-3 (Version None)
Quarter: 2008Q2

REPORT INFORMATION
  Report Type: 
  Country: None (occurrence: None)
  Receive Date: 20080428
  Receipt Date: 20080104
  Transmission Date: 20081010
  Serious: No
  Sender: FDA-Public Use
  Company Number: US-BAYER-200810414NA

PATIENT
  Age: 32 Year
  Sex: Female

DRUGS (5)
  1. MIRENA [Suspect]
     Indication: CONTRACEPTION
     Route: 015
     Dates: start: 20070731, end: 20071206
  2. MIRENA [Suspect]
     Route: 015
     Dates: start: 20071206
  3. ZOLOFT [Concomitant]
  4. BUSPAR [Concomitant]
  5. WELLBUTRIN [Concomitant]

REACTIONS (2)
  - BACK PAIN [None]
  - IUCD COMPLICATION [None]
